FAERS Safety Report 4791103-0 (Version None)
Quarter: 2005Q4

REPORT INFORMATION
  Report Type: 
  Country: None (occurrence: None)
  Receive Date: 20051005
  Receipt Date: 20050920
  Transmission Date: 20060501
  Serious: Yes (Other)
  Sender: FDA-Public Use
  Company Number: GBS050918498

PATIENT
  Age: 36 Year

DRUGS (1)
  1. SOMATROPIN [Suspect]

REACTIONS (3)
  - CARDIOMYOPATHY [None]
  - DILATATION VENTRICULAR [None]
  - VENTRICULAR HYPERTROPHY [None]
